FAERS Safety Report 11833116 (Version 4)
Quarter: 2016Q1

REPORT INFORMATION
  Report Type: Spontaneous
  Country: US (occurrence: US)
  Receive Date: 20151214
  Receipt Date: 20160114
  Transmission Date: 20160525
  Serious: Yes (Other)
  Sender: FDA-Public Use
  Company Number: US-JNJFOC-20151206001

PATIENT
  Age: 75 Year
  Sex: Female
  Weight: 61.69 kg

DRUGS (7)
  1. XARELTO [Suspect]
     Active Substance: RIVAROXABAN
     Indication: THROMBOSIS
     Route: 048
     Dates: start: 20151124, end: 20151201
  2. HYDROCHLOROTHIAZIDE. [Concomitant]
     Active Substance: HYDROCHLOROTHIAZIDE
     Indication: DIURETIC THERAPY
     Route: 065
     Dates: start: 2014
  3. AMLODIPINE [Concomitant]
     Active Substance: AMLODIPINE BESYLATE
     Indication: HYPERTENSION
     Route: 065
     Dates: start: 2014
  4. CALCIUM [Concomitant]
     Active Substance: CALCIUM
     Route: 065
  5. LEVOTHYROXINE. [Concomitant]
     Active Substance: LEVOTHYROXINE
     Indication: THYROIDECTOMY
     Route: 048
     Dates: start: 2010
  6. VITAMIN D [Concomitant]
     Active Substance: CHOLECALCIFEROL
     Indication: BONE DISORDER
     Route: 065
  7. XARELTO [Suspect]
     Active Substance: RIVAROXABAN
     Indication: THROMBOPHLEBITIS
     Route: 048
     Dates: start: 20151124, end: 20151201

REACTIONS (2)
  - Vena cava filter insertion [Recovering/Resolving]
  - Blood urine present [Recovering/Resolving]

NARRATIVE: CASE EVENT DATE: 20151201
